FAERS Safety Report 4995547-3 (Version None)
Quarter: 2006Q2

REPORT INFORMATION
  Report Type: 
  Country: None (occurrence: None)
  Receive Date: 20060508
  Receipt Date: 20060427
  Transmission Date: 20061013
  Serious: Yes (Death, Hospitalization)
  Sender: FDA-Public Use
  Company Number: AU-ROCHE-446333

PATIENT
  Age: 23 Year
  Sex: Male
  Weight: 77.1 kg

DRUGS (6)
  1. VALIUM [Suspect]
     Indication: DRUG USE FOR UNKNOWN INDICATION
     Route: 065
  2. EPILIM [Suspect]
     Indication: DRUG USE FOR UNKNOWN INDICATION
     Route: 065
  3. CLOZARIL [Suspect]
     Route: 048
     Dates: start: 19980402, end: 20000315
  4. CLOZARIL [Suspect]
     Dosage: HE WAS RECEIVING GENERIC CLOZAPINE AT THE TIME OF DEATH.
     Route: 048
  5. LITHIUM CARBONATE [Concomitant]
  6. VENTOLIN [Concomitant]

REACTIONS (11)
  - CHEST DISCOMFORT [None]
  - DIFFICULTY IN WALKING [None]
  - DISORIENTATION [None]
  - DIZZINESS [None]
  - MUSCLE DISORDER [None]
  - NAUSEA [None]
  - RASH GENERALISED [None]
  - RESPIRATORY TRACT INFECTION [None]
  - SOMNOLENCE [None]
  - VIRAL INFECTION [None]
  - VOMITING [None]
